FAERS Safety Report 14973497 (Version 1)
Quarter: 2018Q2

REPORT INFORMATION
  Report Type: Spontaneous
  Country: US (occurrence: US)
  Receive Date: 20180605
  Receipt Date: 20180605
  Transmission Date: 20180711
  Serious: Yes (Other)
  Sender: FDA-Public Use
  Company Number: US-SA-2018SA145741

PATIENT
  Age: 53 Year
  Sex: Male

DRUGS (1)
  1. PRALUENT [Suspect]
     Active Substance: ALIROCUMAB
     Indication: TYPE V HYPERLIPIDAEMIA
     Dosage: 75 MG, QOW
     Route: 058
     Dates: start: 201803

REACTIONS (4)
  - Blood bilirubin increased [Unknown]
  - Abdominal discomfort [Unknown]
  - Diverticulitis [Unknown]
  - Aspartate aminotransferase increased [Unknown]

NARRATIVE: CASE EVENT DATE: 201803
